FAERS Safety Report 5807250-8 (Version None)
Quarter: 2008Q3

REPORT INFORMATION
  Report Type: 
  Country: None (occurrence: None)
  Receive Date: 20080711
  Receipt Date: 20080708
  Transmission Date: 20090109
  Serious: Yes (Death, Hospitalization)
  Sender: FDA-Public Use
  Company Number: FR-ASTRAZENECA-2008CG01051

PATIENT
  Age: 27250 Day
  Sex: Female

DRUGS (14)
  1. CRESTOR [Suspect]
     Route: 048
     Dates: end: 20080103
  2. COVERSYL [Suspect]
     Route: 048
     Dates: end: 20071229
  3. COVERSYL [Suspect]
     Route: 048
     Dates: start: 20080608, end: 20080613
  4. ZOFENIL [Suspect]
     Route: 048
     Dates: end: 20080607
  5. ZOFENIL [Suspect]
     Route: 048
     Dates: start: 20080601, end: 20080621
  6. GLUCOPHAGE [Concomitant]
     Route: 048
     Dates: end: 20071229
  7. GLUCOPHAGE [Concomitant]
     Route: 048
     Dates: start: 20080103
  8. LOVENOX [Concomitant]
     Route: 058
     Dates: end: 20071225
  9. PRAZOSIN HCL [Concomitant]
  10. LASIX [Concomitant]
  11. AMLOR [Concomitant]
  12. INIPOMP [Concomitant]
  13. INSUMAN [Concomitant]
     Route: 058
     Dates: end: 20071229
  14. INSUMAN [Concomitant]
     Route: 058
     Dates: start: 20080102

REACTIONS (5)
  - CARDIAC FAILURE [None]
  - CEREBROVASCULAR ACCIDENT [None]
  - EOSINOPHILIA [None]
  - PERICARDITIS [None]
  - PLEURISY [None]
